FAERS Safety Report 5885392-9 (Version None)
Quarter: 2008Q3

REPORT INFORMATION
  Report Type: 
  Country: None (occurrence: None)
  Receive Date: 20080916
  Receipt Date: 20080902
  Transmission Date: 20090109
  Serious: Yes (Other)
  Sender: FDA-Public Use
  Company Number: AU-ROCHE-584055

PATIENT
  Sex: Female

DRUGS (1)
  1. TAMIFLU [Suspect]
     Dosage: GIVEN 1 DOSE UNSPEC 1 TIME.
     Route: 065
     Dates: start: 20070808

REACTIONS (4)
  - CONVULSION [None]
  - FATIGUE [None]
  - HEADACHE [None]
  - MALAISE [None]
